FAERS Safety Report 6571290-4 (Version None)
Quarter: 2010Q1

REPORT INFORMATION
  Report Type: 
  Country: None (occurrence: None)
  Receive Date: 20100129
  Receipt Date: 20100121
  Transmission Date: 20100710
  Serious: Yes (Hospitalization)
  Sender: FDA-Public Use
  Company Number: 484107

PATIENT
  Age: 56 Year
  Sex: Female
  Weight: 110 kg

DRUGS (13)
  1. ROCURONIUM BROMIDE [Suspect]
     Indication: DRUG USE FOR UNKNOWN INDICATION
     Dosage: 4.0 UG/KG, ^1 EVERY MINUTE^, INTRAVENOUS
     Route: 042
  2. METHYLPREDNESOLONE SODIUM SUCCINATE) [Suspect]
     Indication: DRUG USE FOR UNKNOWN INDICATION
     Dosage: 125 MG ( 8 HOUR) INTRAVENOUS; 80  MG, (8 HOUR) INTRAVENOUS
     Route: 042
  3. ATROVENT [Concomitant]
  4. DOPAMINE  HCL             (DOPAMIDE) [Concomitant]
  5. EPINEPHRINE INJ, USP (EPINEPHRINE) [Concomitant]
  6. FENTANYL [Concomitant]
  7. INSULIN [Concomitant]
  8. LEVOFLOXACIN [Concomitant]
  9. MIDAZOLAM HCL [Concomitant]
  10. (NOREPINEPHRINE) [Concomitant]
  11. (PLAVIX  /001220701/) [Concomitant]
  12. PREVACID [Concomitant]
  13. VENTOLIN [Concomitant]

REACTIONS (2)
  - MYOPATHY [None]
  - POLYNEUROPATHY [None]
